FAERS Safety Report 14244854 (Version 7)
Quarter: 2018Q2

REPORT INFORMATION
  Report Type: Spontaneous
  Country: US (occurrence: US)
  Receive Date: 20171201
  Receipt Date: 20180530
  Transmission Date: 20180711
  Serious: Yes (Death, Hospitalization, Other)
  Sender: FDA-Public Use
  Company Number: US-ACTELION-A-NJ2017-163423

PATIENT
  Age: 63 Year
  Sex: Female
  Weight: 54.42 kg

DRUGS (3)
  1. UPTRAVI [Suspect]
     Active Substance: SELEXIPAG
     Indication: PULMONARY ARTERIAL HYPERTENSION
     Dosage: 1000 MCG, BID
     Route: 048
  2. ADCIRCA [Concomitant]
     Active Substance: TADALAFIL
  3. UPTRAVI [Suspect]
     Active Substance: SELEXIPAG
     Dosage: 800 MCG, BID
     Route: 048

REACTIONS (23)
  - Weight decreased [Unknown]
  - Lung disorder [Unknown]
  - Anxiety [Unknown]
  - Oedema peripheral [Unknown]
  - Gastrointestinal motility disorder [Unknown]
  - Hot flush [Unknown]
  - Heart rate increased [Unknown]
  - Diarrhoea [Unknown]
  - Myalgia [Unknown]
  - Scleroderma [Unknown]
  - Dyspnoea [Unknown]
  - Pain in extremity [Unknown]
  - Feeling cold [Unknown]
  - Pulmonary arterial hypertension [Unknown]
  - Joint swelling [Unknown]
  - Death [Fatal]
  - Abdominal discomfort [Unknown]
  - Constipation [Unknown]
  - Abdominal distension [Unknown]
  - Asthenia [Unknown]
  - Abdominal pain upper [Unknown]
  - Condition aggravated [Unknown]
  - Therapy non-responder [Unknown]

NARRATIVE: CASE EVENT DATE: 20180518
